FAERS Safety Report 6892441 (Version 2)
Quarter: 2014Q1

REPORT INFORMATION
  Report Type: Report from Study
  Country: US (occurrence: US)
  Receive Date: 20090126
  Receipt Date: 20140129
  Transmission Date: 20141002
  Serious: Yes (Death, Life-Threatening, Hospitalization, Other)
  Sender: FDA-Public Use
  Company Number: US-B.I. PHARMACEUTICALS,INC./RIDGEFIELD-2009-DE-00509GD

PATIENT
  Age: 6 Year
  Sex: Male

DRUGS (1)
  1. CLONIDINE [Suspect]
     Route: 048

REACTIONS (8)
  - Medication error [Fatal]
  - Accidental overdose [Fatal]
  - Apnoea [Unknown]
  - Brain oedema [Unknown]
  - Haemodynamic instability [Unknown]
  - Unresponsive to stimuli [Unknown]
  - Bradycardia [Unknown]
  - Hypotension [Unknown]
